FAERS Safety Report 6479207-8 (Version None)
Quarter: 2009Q4

REPORT INFORMATION
  Report Type: 
  Country: None (occurrence: None)
  Receive Date: 20091207
  Receipt Date: 20090831
  Transmission Date: 20100525
  Serious: No
  Sender: FDA-Public Use
  Company Number: US-AMGEN-KDL334208

PATIENT
  Sex: Female
  Weight: 89 kg

DRUGS (5)
  1. ENBREL [Suspect]
     Indication: RHEUMATOID ARTHRITIS
     Route: 058
     Dates: start: 20070401
  2. METHOTREXATE [Suspect]
     Route: 048
     Dates: start: 20080801
  3. SIMVASTATIN [Concomitant]
  4. EFFEXOR [Concomitant]
  5. UNSPECIFIED MEDICATION [Concomitant]

REACTIONS (5)
  - DENTAL CARE [None]
  - IMPAIRED HEALING [None]
  - INJURY [None]
  - LIP SWELLING [None]
  - SCRATCH [None]
